FAERS Safety Report 4531159-3 (Version None)
Quarter: 2004Q4

REPORT INFORMATION
  Report Type: 
  Country: None (occurrence: None)
  Receive Date: 20041216
  Receipt Date: 20041208
  Transmission Date: 20050328
  Serious: Yes (Other)
  Sender: FDA-Public Use
  Company Number: STA-AE-04-MTX-623

PATIENT
  Age: 11 Year
  Sex: Male

DRUGS (1)
  1. METHOTREXATE [Suspect]
     Indication: JUVENILE ARTHRITIS
     Dosage: ORAL
     Route: 048

REACTIONS (5)
  - ALLOGENIC BONE MARROW TRANSPLANTATION THERAPY [None]
  - APLASTIC ANAEMIA [None]
  - HISTIOCYTOSIS HAEMATOPHAGIC [None]
  - LYMPHOHISTIOCYTOSIS [None]
  - PANCYTOPENIA [None]
